FAERS Safety Report 22889823 (Version 4)
Quarter: 2023Q4

REPORT INFORMATION
  Report Type: Report from Study
  Country: CN (occurrence: CN)
  Receive Date: 20230831
  Receipt Date: 20231122
  Transmission Date: 20240110
  Serious: Yes (Death)
  Sender: FDA-Public Use
  Company Number: CN-PFIZER INC-PV202300145451

PATIENT
  Age: 47 Year
  Sex: Female
  Weight: 55.5 kg

DRUGS (43)
  1. BESPONSA [Suspect]
     Active Substance: INOTUZUMAB OZOGAMICIN
     Indication: B-cell type acute leukaemia
     Dosage: 1.24 MG, ONCE
     Route: 041
     Dates: start: 20230712, end: 20230712
  2. SULPERAZONE [Concomitant]
     Active Substance: CEFOPERAZONE SODIUM\SULBACTAM SODIUM
     Dosage: 3 G, 3X/DAY (Q8H)
     Route: 041
     Dates: start: 20230729, end: 20230808
  3. CANCIDAS [Concomitant]
     Active Substance: CASPOFUNGIN ACETATE
     Dosage: 50 MG, QD8
     Route: 041
     Dates: start: 20230728, end: 20230819
  4. METOPROLOL TARTRATE [Concomitant]
     Active Substance: METOPROLOL TARTRATE
     Dosage: 12.5 MG, 2X/DAY, BETALUCIL
     Route: 048
     Dates: start: 20230728, end: 20230820
  5. AMBROXOL HYDROCHLORIDE [Concomitant]
     Active Substance: AMBROXOL HYDROCHLORIDE
     Dosage: 30 MG, 2X/DAY
     Route: 042
     Dates: start: 20230728, end: 20230807
  6. GRANULOCYTE COLONY-STIMULATING FACTOR NOS [Concomitant]
     Active Substance: GRANULOCYTE COLONY-STIMULATING FACTOR NOS
     Dosage: 300 UG, EVERY NIGHT (QN), SHERBERT
     Route: 061
     Dates: start: 20230728, end: 20230813
  7. GRANULOCYTE COLONY-STIMULATING FACTOR NOS [Concomitant]
     Active Substance: GRANULOCYTE COLONY-STIMULATING FACTOR NOS
     Dosage: 300 UG, ONCE, SHERBERT
     Route: 059
     Dates: start: 20230818, end: 20230818
  8. GRANULOCYTE COLONY-STIMULATING FACTOR NOS [Concomitant]
     Active Substance: GRANULOCYTE COLONY-STIMULATING FACTOR NOS
     Dosage: 300 UG, ONCE, SHERBERT
     Route: 059
     Dates: start: 20230820, end: 20230820
  9. VFEND [Concomitant]
     Active Substance: VORICONAZOLE
     Dosage: 200 MG, 2X/DAY (Q12H)
     Route: 048
     Dates: start: 20230728, end: 20230820
  10. METHYLCOBALAMIN [Concomitant]
     Active Substance: METHYLCOBALAMIN
     Dosage: 0.5 MG, 3X/DAY, MICROPROCESSOR
     Route: 048
     Dates: start: 20230728, end: 20230820
  11. POTASSIUM CHLORIDE [Concomitant]
     Active Substance: POTASSIUM CHLORIDE
     Dosage: 1 G, 3X/DAY, SUSTAINED-RELEASE TABLETS
     Route: 048
     Dates: start: 20230728, end: 20230820
  12. EUCALYPTOL, LIMONENE AND PINENE [Concomitant]
     Dosage: 0.3 G, 2X/DAY, ENTERIC CAPSULES, CHERNOBYL
     Route: 048
     Dates: start: 20230801, end: 20230817
  13. BUDESONIDE [Concomitant]
     Active Substance: BUDESONIDE
     Dosage: 2 SPRAY, 2X/DAY, RENO COURT
     Route: 009
     Dates: start: 20230801, end: 20230820
  14. ATROVENT [Concomitant]
     Active Substance: IPRATROPIUM BROMIDE
     Dosage: 500 UG, QD8 (ONCE A DAY EXECUTED AT 8 A.M.), SOLUTION FOR INHALATION
     Route: 045
     Dates: start: 20230802, end: 20230814
  15. PULMICORT TURBUHALER [Concomitant]
     Active Substance: BUDESONIDE
     Dosage: 2 ML, QD8, SUSPENSION FOR INHALATION, PULMICORT RESPULAS
     Route: 045
     Dates: start: 20230802, end: 20230814
  16. CEFOPERAZONE SODIUM\SULBACTAM SODIUM [Concomitant]
     Active Substance: CEFOPERAZONE SODIUM\SULBACTAM SODIUM
     Dosage: 3 G, 3X/DAY (Q8H), SHUPSHEN
     Route: 041
     Dates: start: 20230809, end: 20230810
  17. CILASTATIN SODIUM\IMIPENEM [Concomitant]
     Active Substance: CILASTATIN SODIUM\IMIPENEM
     Dosage: 0.5 G, 3X/DAY (Q8H)
     Route: 041
     Dates: start: 20230810, end: 20230817
  18. FAMOTIDINE [Concomitant]
     Active Substance: FAMOTIDINE
     Dosage: 20 MG, 2X/DAY
     Route: 048
     Dates: start: 20230811, end: 20230820
  19. TIGECYCLINE [Concomitant]
     Active Substance: TIGECYCLINE
     Dosage: 50 MG, 2X/DAY (Q12H), TAICAKE
     Route: 041
     Dates: start: 20230813, end: 20230820
  20. ONDANSETRON HYDROCHLORIDE [Concomitant]
     Active Substance: ONDANSETRON HYDROCHLORIDE
     Dosage: 8 MG, QD8
     Route: 048
     Dates: start: 20230815, end: 20230820
  21. ONDANSETRON HYDROCHLORIDE [Concomitant]
     Active Substance: ONDANSETRON HYDROCHLORIDE
     Dosage: 8 MG, ONCE
     Route: 048
     Dates: start: 20230815, end: 20230815
  22. VANCOMYCIN HYDROCHLORIDE [Concomitant]
     Active Substance: VANCOMYCIN HYDROCHLORIDE
     Dosage: 1000 MG, 2X/DAY (Q12H)
     Route: 041
     Dates: start: 20230817, end: 20230820
  23. PIPERACILLIN AND TAZOBACTAM [Concomitant]
     Active Substance: PIPERACILLIN SODIUM\TAZOBACTAM SODIUM
     Dosage: 4.5 G, 2X/DAY (Q12H)
     Route: 041
     Dates: start: 20230817, end: 20230820
  24. AMBROXOL HYDROCHLORIDE [Concomitant]
     Active Substance: AMBROXOL HYDROCHLORIDE
     Dosage: 30 MG, 2X/DAY (Q12H)
     Route: 041
     Dates: start: 20230817, end: 20230820
  25. BERBAMINE DIHYDROCHLORIDE [Concomitant]
     Active Substance: BERBAMINE DIHYDROCHLORIDE
     Dosage: 0.3 G, 3X/DAY
     Route: 048
     Dates: start: 20230819, end: 20230820
  26. METRONIDAZOLE\SODIUM CHLORIDE [Concomitant]
     Active Substance: METRONIDAZOLE\SODIUM CHLORIDE
     Dosage: 0.5 G, 3X/DAY
     Route: 050
     Dates: start: 20230819, end: 20230820
  27. POTASSIUM CHLORIDE [Concomitant]
     Active Substance: POTASSIUM CHLORIDE
     Dosage: 3 G, ONCE
     Route: 048
     Dates: start: 20230807, end: 20230807
  28. POTASSIUM CHLORIDE [Concomitant]
     Active Substance: POTASSIUM CHLORIDE
     Dosage: 3 G, ONCE
     Route: 048
     Dates: start: 20230810, end: 20230810
  29. POTASSIUM CHLORIDE [Concomitant]
     Active Substance: POTASSIUM CHLORIDE
     Dosage: 2.25 G, ONCE
     Route: 041
     Dates: start: 20230812, end: 20230812
  30. POTASSIUM CHLORIDE [Concomitant]
     Active Substance: POTASSIUM CHLORIDE
     Dosage: 1.5 G, ONCE
     Route: 048
     Dates: start: 20230819, end: 20230819
  31. CARBAZOCHROME SODIUM SULFONATE [Concomitant]
     Active Substance: CARBAZOCHROME SODIUM SULFONATE
     Dosage: 80 MG, QD8
     Route: 041
     Dates: start: 20230728, end: 20230808
  32. METOCLOPRAMIDE DIHYDROCHLORIDE [Concomitant]
     Active Substance: METOCLOPRAMIDE DIHYDROCHLORIDE
     Dosage: 10 MG, ONCE
     Route: 030
     Dates: start: 20230811, end: 20230811
  33. METOCLOPRAMIDE DIHYDROCHLORIDE [Concomitant]
     Active Substance: METOCLOPRAMIDE DIHYDROCHLORIDE
     Dosage: 10 MG, ONCE
     Route: 040
     Dates: start: 20230814, end: 20230814
  34. DEXAMETHASONE SODIUM PHOSPHATE [Concomitant]
     Active Substance: DEXAMETHASONE SODIUM PHOSPHATE
     Dosage: 2 MG, ONCE
     Route: 040
     Dates: start: 20230811, end: 20230811
  35. DEXAMETHASONE SODIUM PHOSPHATE [Concomitant]
     Active Substance: DEXAMETHASONE SODIUM PHOSPHATE
     Dosage: 2 MG, ONCE
     Route: 040
     Dates: start: 20230813, end: 20230813
  36. DEXAMETHASONE SODIUM PHOSPHATE [Concomitant]
     Active Substance: DEXAMETHASONE SODIUM PHOSPHATE
     Dosage: 2 MG, ONCE
     Route: 040
     Dates: start: 20230814, end: 20230814
  37. DEXAMETHASONE SODIUM PHOSPHATE [Concomitant]
     Active Substance: DEXAMETHASONE SODIUM PHOSPHATE
     Dosage: 2 MG, ONCE
     Route: 040
     Dates: start: 20230817, end: 20230817
  38. DEXAMETHASONE SODIUM PHOSPHATE [Concomitant]
     Active Substance: DEXAMETHASONE SODIUM PHOSPHATE
     Dosage: 2 MG, ONCE
     Route: 040
     Dates: start: 20230818, end: 20230818
  39. DEXAMETHASONE SODIUM PHOSPHATE [Concomitant]
     Active Substance: DEXAMETHASONE SODIUM PHOSPHATE
     Dosage: 2 MG, ONCE
     Route: 040
     Dates: start: 20230819, end: 20230819
  40. DEXAMETHASONE SODIUM PHOSPHATE [Concomitant]
     Active Substance: DEXAMETHASONE SODIUM PHOSPHATE
     Dosage: 2 MG, ONCE
     Route: 040
     Dates: start: 20230820, end: 20230820
  41. ACETAMINOPHEN [Concomitant]
     Active Substance: ACETAMINOPHEN
     Dosage: 0.65 G, ONCE, SUSTAINED RELEASE TABLETS
     Route: 048
     Dates: start: 20230818, end: 20230818
  42. ACETAMINOPHEN [Concomitant]
     Active Substance: ACETAMINOPHEN
     Dosage: 0.65 G, ONCE, SUSTAINED RELEASE TABLETS
     Route: 048
     Dates: start: 20230819, end: 20230819
  43. LOXOPROFEN SODIUM [Concomitant]
     Active Substance: LOXOPROFEN SODIUM
     Dosage: 30 MG, ONCE
     Route: 048
     Dates: start: 20230819, end: 20230819

REACTIONS (2)
  - Neoplasm progression [Fatal]
  - Infection [Fatal]

NARRATIVE: CASE EVENT DATE: 20230823
